FAERS Safety Report 22239156 (Version 1)
Quarter: 2023Q2

REPORT INFORMATION
  Report Type: Report from Study
  Country: US (occurrence: US)
  Receive Date: 20230421
  Receipt Date: 20230421
  Transmission Date: 20230722
  Serious: Yes (Hospitalization, Other)
  Sender: FDA-Public Use
  Company Number: US-BAYER-2023P010263

PATIENT
  Age: 18 Year
  Sex: Female
  Weight: 30 kg

DRUGS (3)
  1. REGORAFENIB [Suspect]
     Active Substance: REGORAFENIB
     Indication: Osteosarcoma recurrent
     Dosage: 60 MG/M2 (C1D1)
     Dates: start: 20230124
  2. REGORAFENIB [Suspect]
     Active Substance: REGORAFENIB
     Indication: Osteosarcoma recurrent
     Dosage: 80 MG/M2 (C1D8)
     Dates: start: 20230131, end: 20230206
  3. NIVOLUMAB [Suspect]
     Active Substance: NIVOLUMAB
     Indication: Osteosarcoma recurrent
     Dosage: 3 MG/KG (C1D1) Q14D
     Route: 042
     Dates: start: 20230124, end: 20230124

REACTIONS (7)
  - Drug-induced liver injury [Recovering/Resolving]
  - Blood bilirubin increased [Recovered/Resolved]
  - Aspartate aminotransferase increased [Recovered/Resolved]
  - Alanine aminotransferase increased [Recovered/Resolved]
  - Thrombocytopenia [None]
  - Hypotension [None]
  - Toxic epidermal necrolysis [None]

NARRATIVE: CASE EVENT DATE: 20230205
